FAERS Safety Report 25840903 (Version 1)
Quarter: 2025Q3

REPORT INFORMATION
  Report Type: Spontaneous
  Country: MX (occurrence: MX)
  Receive Date: 20250924
  Receipt Date: 20250924
  Transmission Date: 20251021
  Serious: Yes (Other)
  Sender: MACLEODS
  Company Number: MX-MLMSERVICE-20250909-PI632859-00320-1

PATIENT

DRUGS (6)
  1. LACOSAMIDE [Suspect]
     Active Substance: LACOSAMIDE
     Indication: Familial hemiplegic migraine
     Route: 065
     Dates: start: 2019, end: 202310
  2. LACOSAMIDE [Suspect]
     Active Substance: LACOSAMIDE
     Indication: Partial seizures
  3. TOPIRAMATE [Suspect]
     Active Substance: TOPIRAMATE
     Indication: Familial hemiplegic migraine
     Route: 065
     Dates: start: 2007, end: 202310
  4. TOPIRAMATE [Suspect]
     Active Substance: TOPIRAMATE
     Indication: Partial seizures
  5. PAROXETINE [Concomitant]
     Active Substance: PAROXETINE
     Indication: Pain
     Route: 065
     Dates: start: 2019
  6. KETOROLAC [Concomitant]
     Active Substance: KETOROLAC TROMETHAMINE
     Indication: Pain
     Route: 065
     Dates: start: 2019

REACTIONS (5)
  - Soliloquy [Unknown]
  - Psychotic disorder [Recovering/Resolving]
  - Hallucination, visual [Recovering/Resolving]
  - Aggression [Unknown]
  - Cognitive disorder [Recovering/Resolving]

NARRATIVE: CASE EVENT DATE: 20200101
